FAERS Safety Report 23740959 (Version 2)
Quarter: 2024Q2

REPORT INFORMATION
  Report Type: Spontaneous
  Country: US (occurrence: US)
  Receive Date: 20240415
  Receipt Date: 20240425
  Transmission Date: 20240715
  Serious: No
  Sender: FDA-Public Use
  Company Number: US-TEVA-VS-3175905

PATIENT
  Age: 39 Year
  Sex: Female
  Weight: 78.47 kg

DRUGS (2)
  1. AJOVY [Suspect]
     Active Substance: FREMANEZUMAB-VFRM
     Indication: Migraine with aura
     Dosage: 225/1.5 MG/ML
     Route: 065
     Dates: start: 202305
  2. DEPAKOTE [Concomitant]
     Active Substance: DIVALPROEX SODIUM
     Indication: Product used for unknown indication
     Route: 065

REACTIONS (6)
  - Injection site pain [Unknown]
  - Drug ineffective [Unknown]
  - Injection site reaction [Recovered/Resolved]
  - Injection site pain [Unknown]
  - Injection site hypersensitivity [Unknown]
  - Injection site swelling [Unknown]

NARRATIVE: CASE EVENT DATE: 20230101
